FAERS Safety Report 20364857 (Version 2)
Quarter: 2022Q1

REPORT INFORMATION
  Report Type: Spontaneous
  Country: US (occurrence: US)
  Receive Date: 20220122
  Receipt Date: 20220129
  Transmission Date: 20220423
  Serious: No
  Sender: FDA-Public Use
  Company Number: US-HETERO-HET2022US00120

PATIENT

DRUGS (2)
  1. RITONAVIR [Suspect]
     Active Substance: RITONAVIR
     Indication: COVID-19
     Dosage: 1 TABLET RITONAVIR, TWICE A DAY
     Route: 048
     Dates: start: 20220113
  2. RITONAVIR [Suspect]
     Active Substance: RITONAVIR
     Dosage: PAXLOVID CO-PACKAGE TABLETS 100 MG 5 BLISTER CARDS
     Route: 065

REACTIONS (2)
  - Insomnia [Unknown]
  - Dysgeusia [Unknown]
